FAERS Safety Report 19691104 (Version 1)
Quarter: 2021Q3

REPORT INFORMATION
  Report Type: Spontaneous
  Country: US (occurrence: US)
  Receive Date: 20210812
  Receipt Date: 20210812
  Transmission Date: 20211014
  Serious: Yes (Death)
  Sender: FDA-Public Use
  Company Number: None

PATIENT
  Age: 47 Year
  Sex: Male

DRUGS (11)
  1. NOVOLOG PEN [Concomitant]
  2. TACROLIMUS 0.5 MG [Suspect]
     Active Substance: TACROLIMUS
     Indication: STEM CELL TRANSPLANT
     Route: 048
     Dates: start: 202004, end: 202107
  3. ATOVAQUONE SUSPENSION [Concomitant]
  4. METOPROLOL TARTRATE. [Concomitant]
     Active Substance: METOPROLOL TARTRATE
  5. VITAMIN D3 [Concomitant]
     Active Substance: CHOLECALCIFEROL
  6. LORAZEPAM. [Concomitant]
     Active Substance: LORAZEPAM
  7. LANTUS SOLOSTAR [Concomitant]
     Active Substance: INSULIN GLARGINE
  8. ENTECAVIR 0.5 MG [Suspect]
     Active Substance: ENTECAVIR
     Indication: HEPATITIS B
     Route: 048
     Dates: start: 202004, end: 202107
  9. POSACONAZOLE [Concomitant]
     Active Substance: POSACONAZOLE
  10. ACYCLOVIR. [Concomitant]
     Active Substance: ACYCLOVIR
  11. FAMOTIDINE. [Concomitant]
     Active Substance: FAMOTIDINE

REACTIONS (2)
  - Death [None]
  - Condition aggravated [None]

NARRATIVE: CASE EVENT DATE: 20210727
